FAERS Safety Report 14461290 (Version 2)
Quarter: 2021Q3

REPORT INFORMATION
  Report Type: Spontaneous
  Country: US (occurrence: US)
  Receive Date: 20180130
  Receipt Date: 20210814
  Transmission Date: 20211014
  Serious: Yes (Other)
  Sender: FDA-Public Use
  Company Number: US-TEVA-2018-US-853792

PATIENT
  Age: 59 Year
  Sex: Female

DRUGS (1)
  1. LUTONIX [Suspect]
     Active Substance: DEVICE
     Route: 065

REACTIONS (1)
  - Polyarteritis nodosa [Recovering/Resolving]
